FAERS Safety Report 7866626-8 (Version None)
Quarter: 2011Q4

REPORT INFORMATION
  Report Type: 
  Country: None (occurrence: None)
  Receive Date: 20111028
  Receipt Date: 20110715
  Transmission Date: 20120403
  Serious: No
  Sender: FDA-Public Use
  Company Number: US-GLAXOSMITHKLINE-A0936953A

PATIENT
  Age: 73 Year
  Sex: Female

DRUGS (4)
  1. PRILOSEC [Concomitant]
  2. ADVAIR DISKUS 100/50 [Suspect]
     Indication: ASTHMA
     Dosage: 1PUFF TWICE PER DAY
     Route: 055
     Dates: start: 20100101
  3. BUPROPION HCL [Concomitant]
  4. HIGH BLOOD PRESSURE PILL [Concomitant]

REACTIONS (1)
  - DRUG INEFFECTIVE [None]
